FAERS Safety Report 15819458 (Version 1)
Quarter: 2019Q1

REPORT INFORMATION
  Report Type: Spontaneous
  Country: US (occurrence: US)
  Receive Date: 20190114
  Receipt Date: 20190114
  Transmission Date: 20190417
  Serious: No
  Sender: FDA-Public Use
  Company Number: US-PHARMING-PHAUS2019000023

PATIENT

DRUGS (14)
  1. TAKHZYRO [Concomitant]
     Active Substance: LANADELUMAB-FLYO
  2. DIVALPROEX SODIUM. [Concomitant]
     Active Substance: DIVALPROEX SODIUM
  3. RANITIDINE. [Concomitant]
     Active Substance: RANITIDINE
  4. NORETHIN-ETH ESTRA-FERROUS FUM [Concomitant]
  5. CLONIDINE. [Concomitant]
     Active Substance: CLONIDINE
  6. CETIRIZINE [Concomitant]
     Active Substance: CETIRIZINE HYDROCHLORIDE
  7. RUCONEST [Suspect]
     Active Substance: HUMAN C1-ESTERASE INHIBITOR
     Indication: HEREDITARY ANGIOEDEMA
     Dosage: 4200 IU, AS NEEDED
     Route: 042
     Dates: start: 20181003
  8. EPINEPHRINE. [Concomitant]
     Active Substance: EPINEPHRINE
  9. BIOTIN [Concomitant]
     Active Substance: BIOTIN
  10. SODIUM CHLORIDE. [Concomitant]
     Active Substance: SODIUM CHLORIDE
  11. CLONAZEPAM. [Concomitant]
     Active Substance: CLONAZEPAM
  12. STERILE WATER [Concomitant]
     Active Substance: WATER
  13. COLESEVELAM [Concomitant]
     Active Substance: COLESEVELAM
  14. CITALOPRAM [Concomitant]
     Active Substance: CITALOPRAM HYDROBROMIDE

REACTIONS (2)
  - Endometriosis [Unknown]
  - Surgery [Unknown]

NARRATIVE: CASE EVENT DATE: 201812
